FAERS Safety Report 7187143-7 (Version None)
Quarter: 2010Q4

REPORT INFORMATION
  Report Type: 
  Country: None (occurrence: None)
  Receive Date: 20101222
  Receipt Date: 20101209
  Transmission Date: 20110411
  Serious: Yes (Hospitalization, Other)
  Sender: FDA-Public Use
  Company Number: US-ELI_LILLY_AND_COMPANY-US201011003932

PATIENT
  Sex: Female

DRUGS (7)
  1. FORTEO [Suspect]
     Indication: OSTEOPOROSIS
     Dosage: 20 UG, DAILY (1/D)
  2. FORTEO [Suspect]
     Dosage: 20 UG, DAILY (1/D)
  3. VESICARE [Concomitant]
     Indication: HYPERTONIC BLADDER
  4. HYDROCHLOROTHIAZIDE [Concomitant]
     Dosage: 25 MG, DAILY (1/D)
  5. QUINAPRIL [Concomitant]
     Dosage: 40 MG, DAILY (1/D)
  6. BYSTOLIC [Concomitant]
     Dosage: 10 MG, DAILY (1/D)
  7. POSTURE D [Concomitant]
     Dosage: UNK, 2/D

REACTIONS (2)
  - FALL [None]
  - PELVIC FRACTURE [None]
